FAERS Safety Report 8402819 (Version 4)
Quarter: 2013Q1

REPORT INFORMATION
  Report Type: Spontaneous
  Country: US (occurrence: US)
  Receive Date: 20120213
  Receipt Date: 20130107
  Transmission Date: 20140127
  Serious: Yes (Other)
  Sender: FDA-Public Use
  Company Number: US-BAYER-2012-012055

PATIENT
  Age: 24 Year
  Sex: Female

DRUGS (11)
  1. YAZ [Suspect]
     Dosage: UNK
     Dates: start: 200604, end: 200905
  2. VENTOLIN [Concomitant]
     Dosage: UNK
  3. ADVAIR [Concomitant]
     Dosage: UNK
  4. EPIPEN [Concomitant]
     Indication: HYPERSENSITIVITY
     Dosage: UNK
  5. SEPTRA-DS [Concomitant]
     Dosage: 800/160 MG
  6. CULTURELLE [Concomitant]
  7. PYRIDIUM [Concomitant]
     Dosage: 200 MG, UNK
  8. MIRALAX [Concomitant]
     Dosage: 17 G, DAILY
  9. IBUPROFEN [Concomitant]
     Indication: PAIN
  10. NORCO [Concomitant]
     Indication: PAIN
  11. PHENERGAN [Concomitant]

REACTIONS (9)
  - Deep vein thrombosis [None]
  - Pulmonary embolism [None]
  - Dyspnoea [None]
  - Thrombosis [None]
  - Pain [None]
  - General physical health deterioration [None]
  - Anxiety [None]
  - Emotional distress [None]
  - Anhedonia [None]
